FAERS Safety Report 4287508-7 (Version None)
Quarter: 2004Q1

REPORT INFORMATION
  Report Type: 
  Country: None (occurrence: None)
  Receive Date: 20040205
  Receipt Date: 20040204
  Transmission Date: 20041129
  Serious: Yes (Congenital Anomaly)
  Sender: FDA-Public Use
  Company Number: 000697

PATIENT
  Age: 16 Month
  Sex: Female
  Weight: 10.9 kg

DRUGS (4)
  1. METHOTREXATE [Suspect]
     Indication: ARTHRITIS
     Dosage: SEE IMAGE
     Route: 048
     Dates: start: 19991201, end: 20020701
  2. METHOTREXATE [Suspect]
     Indication: ARTHRITIS
     Dosage: SEE IMAGE
     Route: 048
     Dates: start: 20020701, end: 20030101
  3. ZITHROMAX [Suspect]
     Indication: STREPTOCOCCAL INFECTION
     Dosage: ORAL
     Route: 048
     Dates: start: 20011201, end: 20011201
  4. ORTHO TRI-CYCLEN [Concomitant]

REACTIONS (8)
  - ABASIA [None]
  - ABDOMINAL PAIN [None]
  - DYSSTASIA [None]
  - HYPERMOBILITY SYNDROME [None]
  - HYPOTONIC-HYPORESPONSIVE EPISODE [None]
  - LIGAMENT LAXITY [None]
  - TERATOGENICITY [None]
  - TRANSMISSION OF DRUG VIA SEMEN [None]
